FAERS Safety Report 8159029-2 (Version None)
Quarter: 2012Q1

REPORT INFORMATION
  Report Type: 
  Country: None (occurrence: None)
  Receive Date: 20120103
  Receipt Date: 20110910
  Transmission Date: 20120608
  Serious: No
  Sender: FDA-Public Use
  Company Number: AE-2011-001469

PATIENT
  Age: 48 Year
  Sex: Female
  Weight: 74.8435 kg

DRUGS (3)
  1. RIBAVIRIN [Concomitant]
  2. PEGASYS [Concomitant]
  3. INCIVEK [Suspect]
     Dosage: 3 IN 1 D, ORAL
     Route: 048
     Dates: start: 20110817

REACTIONS (7)
  - PYREXIA [None]
  - CHILLS [None]
  - GINGIVAL BLEEDING [None]
  - MOUTH ULCERATION [None]
  - RASH GENERALISED [None]
  - FATIGUE [None]
  - ASTHENIA [None]
